FAERS Safety Report 7145937-8 (Version None)
Quarter: 2010Q4

REPORT INFORMATION
  Report Type: 
  Country: None (occurrence: None)
  Receive Date: 20101208
  Receipt Date: 20101001
  Transmission Date: 20110411
  Serious: No
  Sender: FDA-Public Use
  Company Number: US-ABBOTT-10P-163-0676784-00

PATIENT
  Sex: Female

DRUGS (5)
  1. ERYPED [Suspect]
     Indication: INFECTION PROPHYLAXIS
     Dosage: TWO OR THREE TIMES DAILY
     Route: 048
  2. ERYPED [Suspect]
     Indication: IMPAIRED GASTRIC EMPTYING
  3. ERYPED [Suspect]
  4. INSULIN [Concomitant]
     Indication: DIABETES MELLITUS
     Dosage: INSULIN PUMP
  5. PREVACID [Concomitant]
     Indication: GASTRIC DISORDER

REACTIONS (3)
  - BLOOD GLUCOSE INCREASED [None]
  - DYSGEUSIA [None]
  - DYSURIA [None]
